FAERS Safety Report 4702000-0 (Version None)
Quarter: 2005Q2

REPORT INFORMATION
  Report Type: 
  Country: None (occurrence: None)
  Receive Date: 20050627
  Receipt Date: 20050609
  Transmission Date: 20051028
  Serious: Yes (Hospitalization)
  Sender: FDA-Public Use
  Company Number: 2004-BP-05244RO

PATIENT
  Age: 64 Year
  Sex: Male

DRUGS (18)
  1. PREDNISONE TAB [Suspect]
     Indication: MANTLE CELL LYMPHOMA
     Dosage: 100 MG/DAY FOR 5 DAYS (R-CHOP 1 CYCLE EVERY 21 DAYS) (NR), PO
     Route: 048
     Dates: start: 20031208
  2. GENASENSE [Suspect]
     Indication: MANTLE CELL LYMPHOMA
     Dosage: 3 MG/KG/DAY (7 DAY CYCLE EVERY 21 DAYS) (NR), IV
     Route: 042
     Dates: start: 20030710
  3. RITUXIMAB (RITUXIMAB) [Suspect]
     Indication: MANTLE CELL LYMPHOMA
     Dosage: 375 MG/M2 (R-CHOP 1 CYCLE EVERY 21 DAYS) (NR), IV
     Route: 042
     Dates: start: 20031208
  4. CYCLOPHOSPHAMIDE [Suspect]
     Indication: MANTLE CELL LYMPHOMA
     Dosage: 750 MG/M2 (R-CHOP 1 CYCLE EVERY 21 DAYS) (NR), IV
     Route: 042
     Dates: start: 20031208
  5. DOXORUBICIN (DOXORUBICIN) [Suspect]
     Indication: MANTLE CELL LYMPHOMA
     Dosage: 50 MG/M2 (R-CHOP 1 CYCLE EVERY 21 DAYS) (NR), IV
     Route: 042
     Dates: start: 20031208
  6. VINCRISTINE [Suspect]
     Indication: MANTLE CELL LYMPHOMA
     Dosage: 1.4 MG/M2 (R-CHOP 1 CYCLE EVERY 21 DAYS) (NR), IV
     Route: 042
     Dates: start: 20031208
  7. ACETAMINOPHEN [Concomitant]
  8. DIPHENHYDRAMINE HCL [Concomitant]
  9. ERYTHROPOIETIN (ERYTHROPOIETIN) [Concomitant]
  10. FENOFIBRATE [Concomitant]
  11. FINASTERIDE [Concomitant]
  12. HYDROCORTISONE [Concomitant]
  13. LANSOPRAZOLE [Concomitant]
  14. METFORMIN HCL [Concomitant]
  15. MULTIVITAMIN [Concomitant]
  16. PSYLLIUM (PLANTAGO AFRA) [Concomitant]
  17. ROFECOXIB [Concomitant]
  18. ROSIGLITAZONE (ROSIGLITAZONE) [Concomitant]

REACTIONS (4)
  - CATHETER SITE PAIN [None]
  - CHILLS [None]
  - FEBRILE NEUTROPENIA [None]
  - HAEMOGLOBIN DECREASED [None]
